FAERS Safety Report 8363842-6 (Version None)
Quarter: 2012Q2

REPORT INFORMATION
  Report Type: 
  Country: None (occurrence: None)
  Receive Date: 20120516
  Receipt Date: 20120104
  Transmission Date: 20120825
  Serious: No
  Sender: FDA-Public Use
  Company Number: US-ALEXION-A201200020

PATIENT
  Sex: Female
  Weight: 54.4 kg

DRUGS (5)
  1. LITHIUM CARBONATE [Concomitant]
     Dosage: UNK
  2. SOLIRIS [Suspect]
     Indication: PAROXYSMAL NOCTURNAL HAEMOGLOBINURIA
     Dosage: UNK, Q2W
     Route: 042
     Dates: start: 20050831
  3. AMBIEN [Concomitant]
     Indication: INSOMNIA
     Dosage: UNK
  4. MECLIZINE [Suspect]
     Indication: VERTIGO
  5. KLONOPIN [Concomitant]
     Indication: INSOMNIA
     Dosage: 0.25 MG, UNK

REACTIONS (6)
  - ANXIETY [None]
  - ANAEMIA [None]
  - VERTIGO [None]
  - FATIGUE [None]
  - SOMNOLENCE [None]
  - WEIGHT DECREASED [None]
